FAERS Safety Report 5518165-7 (Version None)
Quarter: 2007Q4

REPORT INFORMATION
  Report Type: 
  Country: None (occurrence: None)
  Receive Date: 20071113
  Receipt Date: 20071113
  Transmission Date: 20080405
  Serious: Yes (Life-Threatening)
  Sender: FDA-Public Use
  Company Number: None

PATIENT
  Age: 73 Year
  Sex: Male
  Weight: 88.905 kg

DRUGS (1)
  1. CEFUROXIME [Suspect]
     Dosage: 500MG BID ORAL
     Route: 048
     Dates: start: 20071015, end: 20071019

REACTIONS (5)
  - CHOKING [None]
  - DYSPHAGIA [None]
  - DYSPNOEA [None]
  - FOREIGN BODY TRAUMA [None]
  - SPEECH DISORDER [None]
